FAERS Safety Report 21980474 (Version 1)
Quarter: 2023Q1

REPORT INFORMATION
  Report Type: Spontaneous
  Country: US (occurrence: US)
  Receive Date: 20230211
  Receipt Date: 20230211
  Transmission Date: 20230418
  Serious: No
  Sender: FDA-Public Use
  Company Number: US-JNJFOC-20230210953

PATIENT
  Age: 65 Year
  Sex: Female

DRUGS (1)
  1. TREMFYA [Suspect]
     Active Substance: GUSELKUMAB
     Indication: Product used for unknown indication
     Route: 065
     Dates: start: 202210

REACTIONS (2)
  - Bacterial infection [Unknown]
  - Bacterial vulvovaginitis [Unknown]

NARRATIVE: CASE EVENT DATE: 20221115
